FAERS Safety Report 20699897 (Version 1)
Quarter: 2022Q2

REPORT INFORMATION
  Report Type: Report from Study
  Country: IN (occurrence: IN)
  Receive Date: 20220412
  Receipt Date: 20220412
  Transmission Date: 20220721
  Serious: Yes (Hospitalization)
  Sender: FDA-Public Use
  Company Number: IN-NOVARTISPH-PHHY2018IN010180

PATIENT
  Age: 56 Year
  Sex: Female

DRUGS (13)
  1. SIMULECT [Suspect]
     Active Substance: BASILIXIMAB
     Indication: Renal transplant
     Dosage: 20 MG, UNK
     Route: 042
     Dates: start: 20180413, end: 20180415
  2. LAPINE T-LYMPHOCYTE IMMUNE GLOBULIN [Concomitant]
     Active Substance: LAPINE T-LYMPHOCYTE IMMUNE GLOBULIN
     Indication: Prophylaxis against transplant rejection
     Dosage: UNK
     Route: 065
  3. ENOXAPARIN SODIUM [Concomitant]
     Active Substance: ENOXAPARIN SODIUM
     Indication: Product used for unknown indication
     Dosage: UNK
     Route: 065
  4. ACENOCOUMAROL [Concomitant]
     Active Substance: ACENOCOUMAROL
     Indication: Product used for unknown indication
     Dosage: UNK
     Route: 065
  5. NIFEDIPINE [Concomitant]
     Active Substance: NIFEDIPINE
     Indication: Product used for unknown indication
     Dosage: UNK
     Route: 065
  6. PREDNISOLONE [Concomitant]
     Active Substance: PREDNISOLONE
     Indication: Product used for unknown indication
     Dosage: 50 MG, (STAT, BEFORE OT)
     Route: 065
  7. METRONIDAZOLE [Concomitant]
     Active Substance: METRONIDAZOLE
     Indication: Product used for unknown indication
     Dosage: UNK
     Route: 065
  8. MINIPRESS [Concomitant]
     Active Substance: PRAZOSIN HYDROCHLORIDE
     Indication: Product used for unknown indication
     Dosage: UNK
     Route: 065
  9. CEFTAZIDIME [Concomitant]
     Active Substance: CEFTAZIDIME
     Indication: Product used for unknown indication
     Dosage: UNK
     Route: 065
  10. VORIFIT [Concomitant]
     Indication: Product used for unknown indication
     Dosage: UNK
     Route: 065
  11. SOLU-MEDROL [Concomitant]
     Active Substance: METHYLPREDNISOLONE SODIUM SUCCINATE
     Indication: Product used for unknown indication
     Dosage: 1 G, (IN OT)
     Route: 042
  12. CELLCEPT [Concomitant]
     Active Substance: MYCOPHENOLATE MOFETIL
     Indication: Product used for unknown indication
     Dosage: 1 G, (STAT, BEFORE OT)
     Route: 065
  13. PIPERACILLIN AND TAZOBACTAM [Concomitant]
     Active Substance: PIPERACILLIN SODIUM\TAZOBACTAM SODIUM
     Indication: Product used for unknown indication
     Dosage: 2.25 G, BID, (BEFORE OT)
     Route: 042

REACTIONS (11)
  - Renal vein thrombosis [Unknown]
  - Necrosis [Unknown]
  - Haemoglobin decreased [Unknown]
  - Platelet count decreased [Unknown]
  - Disseminated intravascular coagulation [Unknown]
  - Deep vein thrombosis [Unknown]
  - Pelvic venous thrombosis [Unknown]
  - Arteriovenous fistula site complication [Unknown]
  - Hepatitis C antibody positive [Unknown]
  - Hypotension [Unknown]
  - Kidney transplant rejection [Unknown]

NARRATIVE: CASE EVENT DATE: 20180413
